FAERS Safety Report 11568946 (Version 1)
Quarter: 2015Q3

REPORT INFORMATION
  Report Type: Spontaneous
  Country: US (occurrence: None)
  Receive Date: 20150928
  Receipt Date: 20150928
  Transmission Date: 20151125
  Serious: No
  Sender: FDA-Public Use
  Company Number: None

PATIENT
  Age: 47 Year
  Sex: Female
  Weight: 68.04 kg

DRUGS (5)
  1. FLUOXETINE [Suspect]
     Active Substance: FLUOXETINE\FLUOXETINE HYDROCHLORIDE
     Indication: DEPRESSION
     Dosage: 1 PILL
     Route: 048
     Dates: start: 20150921, end: 20150923
  2. METHYLATED FOLIC ACID [Concomitant]
  3. LEVOTHYROXINE. [Concomitant]
     Active Substance: LEVOTHYROXINE
  4. VITAMIN D [Concomitant]
     Active Substance: CHOLECALCIFEROL
  5. FLUOXETINE [Concomitant]
     Active Substance: FLUOXETINE\FLUOXETINE HYDROCHLORIDE

REACTIONS (9)
  - Product quality issue [None]
  - Palpitations [None]
  - Nausea [None]
  - Headache [None]
  - Anxiety [None]
  - Toxicity to various agents [None]
  - Product substitution issue [None]
  - Asthenia [None]
  - Balance disorder [None]

NARRATIVE: CASE EVENT DATE: 20150921
